FAERS Safety Report 11021344 (Version 2)
Quarter: 2015Q2

REPORT INFORMATION
  Report Type: Spontaneous
  Country: US (occurrence: US)
  Receive Date: 20150413
  Receipt Date: 20150612
  Transmission Date: 20150821
  Serious: Yes (Hospitalization, Other)
  Sender: FDA-Public Use
  Company Number: US-009507513-1111USA01449

PATIENT
  Sex: Female

DRUGS (2)
  1. FOSAMAX [Suspect]
     Active Substance: ALENDRONATE SODIUM
     Dosage: 70 MG, QW
     Route: 048
     Dates: start: 2000, end: 2008
  2. FOSAMAX [Suspect]
     Active Substance: ALENDRONATE SODIUM
     Indication: OSTEOPOROSIS
     Dosage: 10 MG, UNK
     Route: 048
     Dates: start: 2000, end: 2008

REACTIONS (15)
  - Anxiety [Unknown]
  - Insomnia [Unknown]
  - Scoliosis [Unknown]
  - Bone disorder [Unknown]
  - Intramedullary rod insertion [Unknown]
  - Intramedullary rod insertion [Unknown]
  - Hypercholesterolaemia [Unknown]
  - Femur fracture [Unknown]
  - Stress fracture [Recovering/Resolving]
  - Osteopenia [Unknown]
  - Bursitis [Unknown]
  - Arthralgia [Unknown]
  - Oral lichen planus [Unknown]
  - Fall [Unknown]
  - Spinal disorder [Unknown]

NARRATIVE: CASE EVENT DATE: 200301
